FAERS Safety Report 19059179 (Version 1)
Quarter: 2021Q1

REPORT INFORMATION
  Report Type: Other
  Country: CA (occurrence: CA)
  Receive Date: 20210326
  Receipt Date: 20210326
  Transmission Date: 20210420
  Serious: Yes (Hospitalization, Other)
  Sender: FDA-Public Use
  Company Number: CA-CELLTRION INC.-2021CA003840

PATIENT

DRUGS (13)
  1. LEUCOVORIN [FOLINIC ACID] [Concomitant]
     Active Substance: LEUCOVORIN
  2. NIFEDIPINE. [Concomitant]
     Active Substance: NIFEDIPINE
  3. FERROUS GLUCONATE [Concomitant]
     Active Substance: FERROUS GLUCONATE
  4. FOLIC ACID. [Concomitant]
     Active Substance: FOLIC ACID
  5. METHOTREXATE. [Concomitant]
     Active Substance: METHOTREXATE
     Route: 048
  6. ESOMEPRAZOLE. [Concomitant]
     Active Substance: ESOMEPRAZOLE MAGNESIUM
  7. RITUXIMAB (UNKNOWN) [Suspect]
     Active Substance: RITUXIMAB
     Indication: RHEUMATOID ARTHRITIS
     Dosage: 1000 MG
     Route: 042
  8. BACLOFEN. [Concomitant]
     Active Substance: BACLOFEN
  9. ROSUVASTATIN CALCIUM. [Concomitant]
     Active Substance: ROSUVASTATIN CALCIUM
  10. METOPROLOL. [Concomitant]
     Active Substance: METOPROLOL
  11. XARELTO [Concomitant]
     Active Substance: RIVAROXABAN
  12. CYMBALTA [Concomitant]
     Active Substance: DULOXETINE HYDROCHLORIDE
  13. TYLENOL [Concomitant]
     Active Substance: ACETAMINOPHEN
     Route: 065

REACTIONS (6)
  - Lung neoplasm malignant [Recovered/Resolved]
  - Rheumatoid arthritis [Recovered/Resolved]
  - Atrial fibrillation [Recovered/Resolved]
  - Blood pressure decreased [Recovered/Resolved]
  - Pericarditis [Recovered/Resolved]
  - Transient ischaemic attack [Recovered/Resolved]
